FAERS Safety Report 7266409-6 (Version None)
Quarter: 2011Q1

REPORT INFORMATION
  Report Type: 
  Country: None (occurrence: None)
  Receive Date: 20110131
  Receipt Date: 20110124
  Transmission Date: 20110831
  Serious: Yes (Other)
  Sender: FDA-Public Use
  Company Number: GB-PFIZER INC-2011017098

PATIENT
  Age: 54 Year
  Sex: Female

DRUGS (5)
  1. SYMBICORT [Concomitant]
     Indication: ASTHMA
     Dosage: 2 DF, 2X/DAY
     Route: 055
     Dates: start: 20050101
  2. APROVEL [Concomitant]
     Indication: HYPERTENSION
     Dosage: 75 MG, UNK
     Route: 048
     Dates: start: 20050101
  3. LEVOTHYROXINE SODIUM [Concomitant]
     Indication: HYPOTHYROIDISM
     Dosage: 75 UG, UNK
     Route: 048
     Dates: start: 20000101
  4. VENLABLUE [Suspect]
     Dosage: 225 MG, UNK
     Route: 048
     Dates: start: 20101221
  5. EFFEXOR XR [Suspect]
     Indication: DEPRESSION
     Dosage: 225 MG, UNK
     Route: 048
     Dates: end: 20101220

REACTIONS (8)
  - PAIN [None]
  - PANIC ATTACK [None]
  - AGITATION [None]
  - DRUG WITHDRAWAL SYNDROME [None]
  - MOBILITY DECREASED [None]
  - DEPRESSION [None]
  - DIZZINESS [None]
  - PARAESTHESIA [None]
